FAERS Safety Report 12106413 (Version 3)
Quarter: 2016Q2

REPORT INFORMATION
  Report Type: Spontaneous
  Country: US (occurrence: US)
  Receive Date: 20160223
  Receipt Date: 20160425
  Transmission Date: 20160815
  Serious: No
  Sender: FDA-Public Use
  Company Number: US-009507513-1602USA005950

PATIENT
  Age: 22 Year
  Sex: Female
  Weight: 63.95 kg

DRUGS (1)
  1. IMPLANON [Suspect]
     Active Substance: ETONOGESTREL
     Dosage: 1 ROD, UNKNOWN
     Route: 059
     Dates: start: 20130124, end: 20160308

REACTIONS (6)
  - Complication associated with device [Recovered/Resolved]
  - Incorrect drug administration duration [Unknown]
  - Pain in extremity [Unknown]
  - Device difficult to use [Recovered/Resolved]
  - Frustration tolerance decreased [Unknown]
  - Device deployment issue [Recovered/Resolved]

NARRATIVE: CASE EVENT DATE: 20130124
